FAERS Safety Report 7433986-1 (Version None)
Quarter: 2011Q2

REPORT INFORMATION
  Report Type: 
  Country: None (occurrence: None)
  Receive Date: 20110420
  Receipt Date: 20110420
  Transmission Date: 20111010
  Serious: Yes (Other)
  Sender: FDA-Public Use
  Company Number: None

PATIENT
  Age: 38 Year
  Sex: Male
  Weight: 99.7913 kg

DRUGS (1)
  1. ZIAC [Suspect]
     Indication: HYPERTENSION
     Dosage: 1 DAILY PO
     Route: 048
     Dates: start: 20110417, end: 20110419

REACTIONS (4)
  - CHEST PAIN [None]
  - PRODUCT LABEL ISSUE [None]
  - HYPERHIDROSIS [None]
  - FEELING JITTERY [None]
